FAERS Safety Report 15029291 (Version 1)
Quarter: 2018Q2

REPORT INFORMATION
  Report Type: Spontaneous
  Country: US (occurrence: US)
  Receive Date: 20180619
  Receipt Date: 20180619
  Transmission Date: 20180711
  Serious: No
  Sender: FDA-Public Use
  Company Number: US-PFIZER INC-2018247434

PATIENT
  Age: 55 Year
  Sex: Female

DRUGS (1)
  1. LYRICA [Suspect]
     Active Substance: PREGABALIN
     Dosage: 150 MG, DAILY (QTY 30, DAY SUPPLY 30)

REACTIONS (4)
  - Nerve injury [Unknown]
  - Pain in extremity [Unknown]
  - Malaise [Unknown]
  - Paraesthesia [Unknown]
